FAERS Safety Report 4827906-3 (Version None)
Quarter: 2005Q4

REPORT INFORMATION
  Report Type: 
  Country: None (occurrence: None)
  Receive Date: 20051114
  Receipt Date: 20051114
  Transmission Date: 20060501
  Serious: No
  Sender: FDA-Public Use
  Company Number: None

PATIENT
  Age: 49 Year
  Sex: Male
  Weight: 86.1834 kg

DRUGS (1)
  1. ZICAM  MATTRIX [Suspect]
     Indication: NASOPHARYNGITIS
     Dosage: 2  1 NASAL
     Route: 045
     Dates: start: 20021101, end: 20021101

REACTIONS (4)
  - AGEUSIA [None]
  - ANOSMIA [None]
  - BURNING SENSATION [None]
  - NASAL CONGESTION [None]
